FAERS Safety Report 7235862-6 (Version None)
Quarter: 2011Q1

REPORT INFORMATION
  Report Type: 
  Country: None (occurrence: None)
  Receive Date: 20110120
  Receipt Date: 20110110
  Transmission Date: 20110831
  Serious: Yes (Other)
  Sender: FDA-Public Use
  Company Number: GB-ROCHE-752447

PATIENT

DRUGS (1)
  1. TAMIFLU [Suspect]
     Route: 065
     Dates: start: 20110108

REACTIONS (3)
  - PYREXIA [None]
  - VOMITING [None]
  - RENAL PAIN [None]
